FAERS Safety Report 5340842-1 (Version None)
Quarter: 2007Q2

REPORT INFORMATION
  Report Type: 
  Country: None (occurrence: None)
  Receive Date: 20070531
  Receipt Date: 20070522
  Transmission Date: 20071010
  Serious: Yes (Death, Hospitalization, Other)
  Sender: FDA-Public Use
  Company Number: GR-ABBOTT-06P-066-0347050-00

PATIENT
  Age: 81 Year
  Sex: Male

DRUGS (15)
  1. HUMIRA [Suspect]
     Indication: RHEUMATOID ARTHRITIS
     Route: 058
     Dates: start: 20040201, end: 20060801
  2. LEFLUNOMIDE [Suspect]
     Indication: RHEUMATOID ARTHRITIS
     Route: 048
     Dates: start: 20040201, end: 20060801
  3. PREDNISOLONE [Concomitant]
     Indication: RHEUMATOID ARTHRITIS
     Route: 048
  4. PREDNISOLONE [Concomitant]
     Route: 048
  5. ACENOCOUMAROL [Concomitant]
     Indication: ATRIAL FIBRILLATION
     Route: 048
  6. AMIODARONE HYDROCHLORIDE [Concomitant]
     Indication: ATRIAL FIBRILLATION
     Route: 048
  7. CLONIDINE [Concomitant]
     Indication: CORONARY ARTERY DISEASE
     Route: 048
  8. LOSARTAN POTASSIUM [Concomitant]
     Indication: CORONARY ARTERY DISEASE
  9. FUROSEMIDE [Concomitant]
     Indication: CORONARY ARTERY DISEASE
     Route: 048
  10. GLYCERYL TRINITRATE [Concomitant]
     Indication: CORONARY ARTERY DISEASE
     Route: 061
  11. SPIRIVA [Concomitant]
     Indication: CHRONIC OBSTRUCTIVE PULMONARY DISEASE
     Route: 055
  12. CALCIUM-SANDOZ FORTE [Concomitant]
     Indication: DRUG USE FOR UNKNOWN INDICATION
     Route: 048
  13. ALFACALCIDOL [Concomitant]
     Indication: DRUG USE FOR UNKNOWN INDICATION
     Route: 048
  14. DIGOXIN [Concomitant]
     Indication: CARDIAC FAILURE
     Route: 048
  15. ALLOPURINOL [Concomitant]
     Indication: HYPERURICAEMIA
     Route: 048

REACTIONS (14)
  - ANAEMIA [None]
  - AORTIC STENOSIS [None]
  - C-REACTIVE PROTEIN INCREASED [None]
  - CARDIAC FAILURE [None]
  - CARDIO-RESPIRATORY ARREST [None]
  - CHEST PAIN [None]
  - CORONARY ARTERY DISEASE [None]
  - DYSPNOEA [None]
  - HODGKIN'S DISEASE LYMPHOCYTE PREDOMINANCE TYPE STAGE UNSPECIFIED [None]
  - INFECTION [None]
  - PLEURAL EFFUSION [None]
  - POLYARTHRITIS [None]
  - RENAL FAILURE CHRONIC [None]
  - RHEUMATOID ARTHRITIS [None]
